FAERS Safety Report 5103724-6 (Version None)
Quarter: 2006Q3

REPORT INFORMATION
  Report Type: 
  Country: None (occurrence: None)
  Receive Date: 20060913
  Receipt Date: 20060904
  Transmission Date: 20061208
  Serious: Yes (Hospitalization)
  Sender: FDA-Public Use
  Company Number: JP-NOVOPROD-256811

PATIENT
  Age: 62 Year
  Sex: Male
  Weight: 58 kg

DRUGS (7)
  1. NOVOLIN R [Suspect]
     Indication: DIABETES MELLITUS
     Dosage: 14 IU, QD
     Route: 058
     Dates: start: 20060810
  2. NOVOLIN R [Suspect]
     Dosage: 12 IU, QD
     Route: 058
  3. NOVOLIN R [Suspect]
     Dosage: 10 IU, QD
     Route: 058
  4. NOVOLIN R [Suspect]
     Indication: DIABETES MELLITUS
     Dosage: 14+10+0
     Route: 058
     Dates: start: 20060810
  5. NOVOLIN R [Suspect]
     Dosage: 24 UNK, UNK
  6. HUMULIN 70/30 [Concomitant]
     Dates: start: 20060810, end: 20060810
  7. MAGMITT [Concomitant]

REACTIONS (5)
  - ALANINE AMINOTRANSFERASE INCREASED [None]
  - ASPARTATE AMINOTRANSFERASE INCREASED [None]
  - BLOOD GLUCOSE INCREASED [None]
  - HAEMATEMESIS [None]
  - KETOACIDOSIS [None]
